FAERS Safety Report 9412744 (Version 1)
Quarter: 2013Q3

REPORT INFORMATION
  Report Type: Spontaneous
  Country: US (occurrence: US)
  Receive Date: 20130722
  Receipt Date: 20130722
  Transmission Date: 20140515
  Serious: No
  Sender: FDA-Public Use
  Company Number: US-JNJFOC-20130709125

PATIENT
  Age: 39 Year
  Sex: Male
  Weight: 117.94 kg

DRUGS (2)
  1. DURAGESIC [Suspect]
     Indication: BACK PAIN
     Route: 062
     Dates: start: 201302
  2. DILAUDID [Concomitant]
     Indication: BREAKTHROUGH PAIN
     Route: 048
     Dates: start: 201302, end: 20130712

REACTIONS (1)
  - Drug dose omission [Recovered/Resolved]
